FAERS Safety Report 22746718 (Version 4)
Quarter: 2023Q4

REPORT INFORMATION
  Report Type: Spontaneous
  Country: US (occurrence: US)
  Receive Date: 20230725
  Receipt Date: 20231018
  Transmission Date: 20240110
  Serious: No
  Sender: FDA-Public Use
  Company Number: US-PFIZER INC-PV202300126725

PATIENT
  Age: 12 Year
  Sex: Male
  Weight: 49.7 kg

DRUGS (1)
  1. GENOTROPIN [Suspect]
     Active Substance: SOMATROPIN
     Indication: Growth hormone deficiency
     Dosage: UNK, 1X/DAY (DAILY DOSE WITH UNITS: 1, FREQUENCY: ONCE DAILY)
     Route: 058
     Dates: start: 20230411, end: 20230417

REACTIONS (2)
  - Poor quality device used [Unknown]
  - Liquid product physical issue [Unknown]

NARRATIVE: CASE EVENT DATE: 20230401
